FAERS Safety Report 9183682 (Version 1)
Quarter: 2012Q4

REPORT INFORMATION
  Report Type: 
  Country: US (occurrence: US)
  Receive Date: 20121101
  Receipt Date: 20121101
  Transmission Date: 20130627
  Serious: No
  Sender: FDA-Public Use
  Company Number: US-PFIZER INC-2012271042

PATIENT
  Age: 65 Year
  Sex: Male

DRUGS (1)
  1. INLYTA [Suspect]
     Indication: KIDNEY CANCER
     Dosage: 5 mg, 2x/day
     Route: 048
     Dates: start: 20121010

REACTIONS (4)
  - Weight decreased [Unknown]
  - Pain in extremity [Unknown]
  - Peripheral coldness [Unknown]
  - Paraesthesia [Unknown]
